FAERS Safety Report 14141591 (Version 1)
Quarter: 2017Q4

REPORT INFORMATION
  Report Type: Spontaneous
  Country: NZ (occurrence: NZ)
  Receive Date: 20171030
  Receipt Date: 20171030
  Transmission Date: 20180321
  Serious: Yes (Other)
  Sender: FDA-Public Use
  Company Number: NZ-GLENMARK PHARMACEUTICALS-2017GMK029465

PATIENT
  Age: 24 Year
  Sex: Female

DRUGS (5)
  1. LAMOTRIGINE. [Suspect]
     Active Substance: LAMOTRIGINE
     Dosage: 200MG, OD (IN THE EVENING)
     Route: 065
  2. LAMOTRIGINE. [Suspect]
     Active Substance: LAMOTRIGINE
     Dosage: 150 MG, AM (IN THE MORNING)
     Route: 065
  3. CARBAMAZEPINE. [Concomitant]
     Active Substance: CARBAMAZEPINE
     Indication: PARTIAL SEIZURES
     Dosage: 800 MG, BID
     Route: 065
  4. LAMOTRIGINE. [Suspect]
     Active Substance: LAMOTRIGINE
     Indication: SEIZURE
     Dosage: UNK (SLOWLY TITRATED)
     Route: 065
  5. CLONAZEPAM. [Concomitant]
     Active Substance: CLONAZEPAM
     Indication: PARTIAL SEIZURES
     Dosage: 2 MG, BID
     Route: 065

REACTIONS (4)
  - Toxicity to various agents [Recovered/Resolved]
  - Eosinophilia [Recovered/Resolved]
  - Pseudolymphoma [Recovered/Resolved]
  - Pulmonary mass [Recovered/Resolved]
